FAERS Safety Report 18961721 (Version 1)
Quarter: 2021Q1

REPORT INFORMATION
  Report Type: Spontaneous
  Country: NL (occurrence: NL)
  Receive Date: 20210303
  Receipt Date: 20210303
  Transmission Date: 20210420
  Serious: Yes (Hospitalization)
  Sender: FDA-Public Use
  Company Number: NL-NOVOPROD-791559

PATIENT
  Age: 50 Year
  Sex: Female
  Weight: 120 kg

DRUGS (12)
  1. ACECORT [Concomitant]
     Dosage: 20 MG
     Route: 065
  2. HYDROCORTISON [HYDROCORTISONE] [Concomitant]
     Dosage: 5 MG
     Route: 065
  3. NOVORAPID [Concomitant]
     Active Substance: INSULIN ASPART
     Dosage: SOLUTION FOR INJECTION, 100 IU / ML
     Route: 065
  4. METOPROLOL TARTRATE. [Concomitant]
     Active Substance: METOPROLOL TARTRATE
     Dosage: UNK
     Route: 065
  5. OZEMPIC [Suspect]
     Active Substance: SEMAGLUTIDE
     Indication: PRODUCT USED FOR UNKNOWN INDICATION
     Dosage: 1 MG, QW
     Route: 065
     Dates: start: 202009, end: 20210111
  6. TRESIBA [Concomitant]
     Active Substance: INSULIN DEGLUDEC
     Dosage: SOLUTION FOR INJECTION, 100 IU / ML
     Route: 065
  7. MAAGZUURREMMENDE OMEPRAZOL [Concomitant]
     Dosage: 20 MG (MILLIGRAM)
     Route: 065
  8. ACECORT [Concomitant]
     Dosage: 5 MG
     Route: 065
  9. ROSUVASTATINE [ROSUVASTATIN] [Concomitant]
     Active Substance: ROSUVASTATIN
     Dosage: TABLET, 5 MG (MILLIGRAM)
     Route: 065
  10. EUTHYROX [Concomitant]
     Active Substance: LEVOTHYROXINE SODIUM
     Dosage: TABLET, 125 ?G (MICROGRAM)
     Route: 065
  11. HYDROCORTISON [HYDROCORTISONE] [Concomitant]
     Dosage: 20 MG
     Route: 065
  12. JARDIANCE [Concomitant]
     Active Substance: EMPAGLIFLOZIN
     Dosage: 10 MG (MILLIGRAM)
     Route: 065

REACTIONS (2)
  - Adrenocortical insufficiency acute [Recovered/Resolved]
  - Abdominal pain [Recovered/Resolved]

NARRATIVE: CASE EVENT DATE: 20201022
